FAERS Safety Report 17351322 (Version 1)
Quarter: 2020Q1

REPORT INFORMATION
  Report Type: Spontaneous
  Country: GB (occurrence: GB)
  Receive Date: 20200130
  Receipt Date: 20200130
  Transmission Date: 20200409
  Serious: Yes (Other)
  Sender: FDA-Public Use
  Company Number: GB-TEVA-2019-GB-1098965

PATIENT
  Age: 67 Year
  Sex: Male
  Weight: 60 kg

DRUGS (21)
  1. LEVOFLOXACIN. [Suspect]
     Active Substance: LEVOFLOXACIN
     Indication: CHRONIC OBSTRUCTIVE PULMONARY DISEASE
     Dates: start: 20190701
  2. PREDNISOLONE. [Suspect]
     Active Substance: PREDNISOLONE
     Indication: CHRONIC OBSTRUCTIVE PULMONARY DISEASE
     Dosage: FOR 5 DAYS
  3. SYMBICORT [Concomitant]
     Active Substance: BUDESONIDE\FORMOTEROL FUMARATE DIHYDRATE
     Dosage: 400/12
     Route: 055
  4. PREDNISOLONE. [Concomitant]
     Active Substance: PREDNISOLONE
     Dosage: FOR 7 DAYS, TWO COURSES OF RESUCE P...
     Dates: start: 20190530, end: 20190613
  5. GLYCERYL TRINITRATE [Concomitant]
     Active Substance: NITROGLYCERIN
     Dosage: AS DIRECTED
     Dates: start: 20190208
  6. ACETYLSALICYLIC ACID [Concomitant]
     Active Substance: ASPIRIN
  7. PARACETAMOL [Concomitant]
     Active Substance: ACETAMINOPHEN
     Dosage: 1 -2 AS REQUIRED 4 HOURLY UPTO FOUR TIMES A DAY
     Dates: start: 20190208
  8. VENTOLIN [Concomitant]
     Active Substance: ALBUTEROL SULFATE
     Dosage: AND AS REQUIRED
  9. LANSOPRAZOLE. [Concomitant]
     Active Substance: LANSOPRAZOLE
  10. SPIRIVA [Concomitant]
     Active Substance: TIOTROPIUM BROMIDE MONOHYDRATE
     Dosage: 2.5MCG/DOSE
     Dates: start: 20190208
  11. ATORVASTATIN [Concomitant]
     Active Substance: ATORVASTATIN
     Dosage: AT NIGHT
     Dates: start: 20190208
  12. RAMIPRIL. [Concomitant]
     Active Substance: RAMIPRIL
  13. DOXYCYCLINE. [Concomitant]
     Active Substance: DOXYCYCLINE
     Dosage: TWO NOW THEN ONE DAILY
     Dates: start: 20190530, end: 20190606
  14. SILVER NITRATE. [Concomitant]
     Active Substance: SILVER NITRATE
     Dosage: USE AS DIRECTED
  15. METOCLOPRAMIDE. [Concomitant]
     Active Substance: METOCLOPRAMIDE
     Dosage: 5MG/ML
  16. ZOMORPH [Concomitant]
     Active Substance: MORPHINE SULFATE
     Dosage: 30MG MR CAPSULE (1 CAPSULE TWICE A DAY) AND 10MG MR CAPSULE (2 CAPSULES TWICE A DAY)
     Dates: start: 20190208
  17. FERROUS SULFATE. [Concomitant]
     Active Substance: FERROUS SULFATE
     Dates: start: 20190208
  18. NUTRITIONAL SUPPLEMENT [Concomitant]
     Active Substance: DIETARY SUPPLEMENT
     Dosage: AS DIRECTED
  19. IVABRADINE [Concomitant]
     Active Substance: IVABRADINE
     Dates: start: 20190208
  20. EPLERENONE. [Concomitant]
     Active Substance: EPLERENONE
     Dates: start: 20190208, end: 20190530
  21. CARBOCISTEINE [Concomitant]
     Active Substance: CARBOCYSTEINE
     Dosage: 250MG/ML. VIA GASTROSTOMY

REACTIONS (1)
  - Tendonitis [Not Recovered/Not Resolved]

NARRATIVE: CASE EVENT DATE: 20190701
